FAERS Safety Report 9193528 (Version 1)
Quarter: 2013Q1

REPORT INFORMATION
  Report Type: Spontaneous
  Country: US (occurrence: US)
  Receive Date: 20130327
  Receipt Date: 20130327
  Transmission Date: 20140127
  Serious: No
  Sender: FDA-Public Use
  Company Number: US-ASTRAZENECA-2013SE17119

PATIENT
  Age: 63 Year
  Sex: Female
  Weight: 56.7 kg

DRUGS (9)
  1. ENTOCORT EC CAPSULES [Suspect]
     Indication: COLITIS MICROSCOPIC
     Route: 048
     Dates: start: 201302
  2. ENTOCORT EC CAPSULES [Suspect]
     Indication: COLITIS MICROSCOPIC
     Route: 048
     Dates: start: 20130220
  3. PRILOSEC OTC [Suspect]
     Indication: GASTROOESOPHAGEAL REFLUX DISEASE
     Dosage: USUALLY 1 OR 2 PILLS PER DAY
     Route: 048
  4. PRILOSEC OTC [Suspect]
     Indication: GASTROOESOPHAGEAL REFLUX DISEASE
     Route: 048
     Dates: start: 201301, end: 201301
  5. MULTIVITAMIN [Concomitant]
     Indication: SUPPLEMENTATION THERAPY
  6. VITAMIN C [Concomitant]
  7. OMEGA 3 [Concomitant]
  8. GLUCOSAMIN WITH CHONDROITIN MOVE FORWARD MUSCLE [Concomitant]
     Indication: SKELETAL MUSCLE ENZYMES
  9. OIL PILLS [Concomitant]

REACTIONS (12)
  - Therapeutic response unexpected [Unknown]
  - Local swelling [Unknown]
  - Activities of daily living impaired [Unknown]
  - Weight increased [Unknown]
  - Fatigue [Unknown]
  - Oesophageal spasm [Unknown]
  - Cardiac discomfort [Unknown]
  - Abdominal discomfort [Unknown]
  - Joint swelling [Unknown]
  - Stress [Unknown]
  - Nausea [Unknown]
  - Off label use [Unknown]
